FAERS Safety Report 9432209 (Version 1)
Quarter: 2013Q3

REPORT INFORMATION
  Report Type: Spontaneous
  Country: CA (occurrence: CA)
  Receive Date: 20130731
  Receipt Date: 20130731
  Transmission Date: 20140515
  Serious: Yes (Other)
  Sender: FDA-Public Use
  Company Number: PHHY2012CA014001

PATIENT
  Age: 74 Year
  Sex: Female

DRUGS (10)
  1. TASIGNA [Suspect]
     Indication: CHRONIC MYELOID LEUKAEMIA
     Dosage: 300 MG, BID
     Route: 048
     Dates: start: 20070115, end: 20130502
  2. PERSANTINE [Concomitant]
  3. IRBESARTAN [Concomitant]
     Dosage: 75 MG, UNK
  4. AMLODIPINE [Concomitant]
     Dosage: 2.5 MG, UNK
  5. POTASSIUM [Concomitant]
     Dosage: 600 MG, BID
  6. ATORVASTATIN [Concomitant]
     Dosage: 20 MG, UNK
  7. FOSAMAX [Concomitant]
     Dosage: 70 MG, UNK
  8. ESOMEPRAZOLE [Concomitant]
     Dosage: 40 MG, UNK
  9. TRAMACET [Concomitant]
     Dosage: 1 DF, PRN
  10. NITROGLYCERINE [Concomitant]
     Dosage: 0.4 MG, UNK

REACTIONS (2)
  - Peripheral arterial occlusive disease [Not Recovered/Not Resolved]
  - Intermittent claudication [Not Recovered/Not Resolved]
